FAERS Safety Report 19667283 (Version 1)
Quarter: 2021Q3

REPORT INFORMATION
  Report Type: Spontaneous
  Country: US (occurrence: US)
  Receive Date: 20210806
  Receipt Date: 20210806
  Transmission Date: 20211014
  Serious: Yes (Hospitalization)
  Sender: FDA-Public Use
  Company Number: US-MYLANLABS-2021M1048729

PATIENT
  Age: 43 Year
  Sex: Female
  Weight: 57.7 kg

DRUGS (1)
  1. DOXYCYCLINE. [Suspect]
     Active Substance: DOXYCYCLINE
     Indication: ACNE
     Dosage: 100 MILLIGRAM, 3 DOSES
     Route: 065

REACTIONS (1)
  - Cholestatic liver injury [Recovered/Resolved]
